FAERS Safety Report 8014596-4 (Version None)
Quarter: 2011Q4

REPORT INFORMATION
  Report Type: 
  Country: None (occurrence: None)
  Receive Date: 20111229
  Receipt Date: 20111213
  Transmission Date: 20120403
  Serious: Yes (Hospitalization)
  Sender: FDA-Public Use
  Company Number: BR-PFIZER INC-K201100411

PATIENT
  Sex: Female

DRUGS (6)
  1. PHENYTOIN [Concomitant]
     Dosage: UNK
  2. AMLODIPINE [Suspect]
     Indication: HYPERTENSION
     Dosage: 5 MG, UNK
     Route: 048
     Dates: start: 20100801, end: 20101201
  3. MANIDIPINE [Suspect]
     Indication: HYPERTENSION
     Dosage: 10 MG, UNK
     Route: 048
     Dates: start: 20100801, end: 20101201
  4. ALTACE [Suspect]
     Indication: HYPERTENSION
     Dosage: 10 MG, 1X/DAY
     Route: 048
     Dates: start: 20100801
  5. BENICAR [Suspect]
     Indication: HYPERTENSION
     Dosage: 40 MG, 1X/DAY
     Route: 048
     Dates: start: 20100801, end: 20101201
  6. PHENOBARBITAL [Concomitant]
     Dosage: UNK

REACTIONS (5)
  - PERIPHERAL NERVE OPERATION [None]
  - DRUG INEFFECTIVE [None]
  - PAIN IN EXTREMITY [None]
  - ERYTHEMA [None]
  - OEDEMA PERIPHERAL [None]
